FAERS Safety Report 10210453 (Version 2)
Quarter: 2014Q2

REPORT INFORMATION
  Report Type: Spontaneous
  Country: BE (occurrence: BE)
  Receive Date: 20140602
  Receipt Date: 20140602
  Transmission Date: 20141212
  Serious: Yes (Hospitalization, Other)
  Sender: FDA-Public Use
  Company Number: BE-ELI_LILLY_AND_COMPANY-BE201405006317

PATIENT
  Age: 50 Year
  Sex: Male

DRUGS (1)
  1. ZYPADHERA [Suspect]
     Indication: PRODUCT USED FOR UNKNOWN INDICATION
     Dosage: 405 MG, EVERY 2 WEEKS
     Route: 030
     Dates: start: 2012

REACTIONS (3)
  - Sedation [Unknown]
  - Delirium [Unknown]
  - Prescribed overdose [Unknown]
